FAERS Safety Report 5800452-6 (Version None)
Quarter: 2008Q3

REPORT INFORMATION
  Report Type: 
  Country: None (occurrence: None)
  Receive Date: 20080702
  Receipt Date: 20080702
  Transmission Date: 20090109
  Serious: Yes (Life-Threatening, Hospitalization)
  Sender: FDA-Public Use
  Company Number: None

PATIENT
  Age: 46 Year
  Sex: Male
  Weight: 103.4201 kg

DRUGS (2)
  1. CYMBALTA [Suspect]
     Dosage: 60 MG TWO DAILY
  2. SEROQUEL [Suspect]
     Dosage: 300 MG TWO DAILY

REACTIONS (2)
  - CONVULSION [None]
  - PNEUMONIA ASPIRATION [None]
